FAERS Safety Report 9825287 (Version 1)
Quarter: 2013Q4

REPORT INFORMATION
  Report Type: Spontaneous
  Country: US (occurrence: None)
  Receive Date: 20131028
  Receipt Date: 20131028
  Transmission Date: 20140711
  Serious: Yes (Other)
  Sender: FDA-Public Use
  Company Number: 2013US001976

PATIENT
  Sex: Male

DRUGS (1)
  1. ICLUSIG (PONATINIB) TABLET, 45 MG [Suspect]
     Dosage: 45 MG, UNK, ORAL
     Route: 048

REACTIONS (1)
  - Neutrophil count decreased [None]
